FAERS Safety Report 4714954-7 (Version None)
Quarter: 2005Q3

REPORT INFORMATION
  Report Type: 
  Country: None (occurrence: None)
  Receive Date: 20050715
  Receipt Date: 20041122
  Transmission Date: 20060218
  Serious: Yes (Other)
  Sender: FDA-Public Use
  Company Number: BE-JNJFOC-20041106146

PATIENT
  Age: 60 Year
  Sex: Male

DRUGS (12)
  1. PROPULSID [Suspect]
     Indication: DIABETIC GASTROPARESIS
     Route: 048
     Dates: start: 20030509, end: 20041119
  2. INSULIN [Concomitant]
     Dosage: 1.3E/H 0H00-08H00  1.5E/H 08H00-10H00  1 E/H 10H00-14H00  1.7E/H 14H00-22H00  1.6 E/H 22H00-24H00
  3. LASIX [Concomitant]
  4. NEXIUM [Concomitant]
     Indication: REFLUX OESOPHAGITIS
     Route: 048
  5. APROVEL [Concomitant]
     Route: 048
  6. SELOZOK [Concomitant]
     Route: 048
  7. ADALAT [Concomitant]
     Route: 048
  8. EUTHYROX [Concomitant]
     Indication: HYPOTHYROIDISM
     Route: 048
  9. ZOCOR [Concomitant]
     Route: 048
  10. PLAVIX [Concomitant]
     Indication: THROMBOSIS
     Route: 048
  11. NITRODERM [Concomitant]
     Route: 048
  12. LEVOPRAID [Concomitant]
     Route: 048

REACTIONS (1)
  - ELECTROCARDIOGRAM QT PROLONGED [None]
